FAERS Safety Report 13611730 (Version 7)
Quarter: 2017Q3

REPORT INFORMATION
  Report Type: Report from Study
  Country: None (occurrence: IL)
  Receive Date: 20170605
  Receipt Date: 20170731
  Transmission Date: 20171127
  Serious: Yes (Hospitalization, Other)
  Sender: FDA-Public Use
  Company Number: IL-ABBVIE-17K-082-1994416-00

PATIENT
  Age: 59 Year
  Sex: Male
  Weight: 64 kg

DRUGS (4)
  1. TRIOMEL N9 W/ELEC. INF 2 [Concomitant]
     Indication: PRODUCT USED FOR UNKNOWN INDICATION
     Dosage: CHRONIC MEDICATION UPON ARRIVAL AT ER
     Route: 042
  2. TARGIN [Concomitant]
     Active Substance: NALOXONE HYDROCHLORIDE\OXYCODONE HYDROCHLORIDE
     Indication: INTERVERTEBRAL DISC PROTRUSION
  3. HUMIRA [Suspect]
     Active Substance: ADALIMUMAB
     Indication: CROHN^S DISEASE
     Route: 058
     Dates: end: 20170530
  4. ALITRAQ PWD 0 CF [Concomitant]
     Indication: PRODUCT USED FOR UNKNOWN INDICATION
     Dosage: CHRONIC MEDICATION UPON ARRIVAL AT ER
     Route: 048

REACTIONS (10)
  - Gastroenterostomy [Recovered/Resolved]
  - Decreased appetite [Unknown]
  - Abdominal pain [Recovered/Resolved]
  - Pain [Recovered/Resolved]
  - Stoma site discharge [Recovered/Resolved]
  - Renal impairment [Recovered/Resolved]
  - Oedema peripheral [Recovered/Resolved]
  - Renal failure [Recovering/Resolving]
  - Gastrointestinal anastomotic leak [Recovered/Resolved]
  - Asthenia [Recovering/Resolving]

NARRATIVE: CASE EVENT DATE: 201706
